FAERS Safety Report 9946559 (Version 1)
Quarter: 2014Q1

REPORT INFORMATION
  Report Type: Report from Study
  Country: US (occurrence: US)
  Receive Date: 20140303
  Receipt Date: 20140303
  Transmission Date: 20141002
  Serious: No
  Sender: FDA-Public Use
  Company Number: US-ABBVIE-13P-163-1059620-00

PATIENT
  Sex: Female

DRUGS (3)
  1. HUMIRA [Suspect]
     Indication: CROHN^S DISEASE
     Dosage: ONE TIME DOSE
     Route: 058
     Dates: start: 201210, end: 201210
  2. HUMIRA [Suspect]
     Dosage: ONE TIME DOSE
     Route: 058
     Dates: start: 20130112, end: 20130112
  3. HUMIRA [Suspect]
     Dosage: ONE TIME DOSE
     Route: 058
     Dates: start: 20130223, end: 20130223

REACTIONS (3)
  - Arthralgia [Recovered/Resolved]
  - Pain in extremity [Recovered/Resolved]
  - Nausea [Recovered/Resolved]
